FAERS Safety Report 4307366-1 (Version None)
Quarter: 2004Q1

REPORT INFORMATION
  Report Type: 
  Country: None (occurrence: None)
  Receive Date: 20040226
  Receipt Date: 20040213
  Transmission Date: 20041129
  Serious: Yes (Hospitalization)
  Sender: FDA-Public Use
  Company Number: 2004UW02681

PATIENT
  Age: 66 Year
  Sex: Male
  Weight: 63.5036 kg

DRUGS (6)
  1. IRESSA [Suspect]
     Dosage: 250 MG QD PO
     Route: 048
     Dates: start: 20040114
  2. VANCOMYCIN [Concomitant]
  3. ATIVAN [Concomitant]
  4. DURAGESIC [Concomitant]
  5. HYDROCODONE [Concomitant]
  6. WARFARIN SODIUM [Concomitant]

REACTIONS (5)
  - CENTRAL LINE INFECTION [None]
  - CONJUNCTIVITIS [None]
  - DRUG INEFFECTIVE [None]
  - RED BLOOD CELL COUNT DECREASED [None]
  - STAPHYLOCOCCAL INFECTION [None]
